FAERS Safety Report 9210788 (Version 7)
Quarter: 2014Q1

REPORT INFORMATION
  Report Type: Spontaneous
  Country: JP (occurrence: JP)
  Receive Date: 20130404
  Receipt Date: 20140213
  Transmission Date: 20141002
  Serious: No
  Sender: FDA-Public Use
  Company Number: JP-GLAXOSMITHKLINE-B0880414A

PATIENT
  Age: 66 Year
  Sex: Female
  Weight: 44 kg

DRUGS (7)
  1. HYCAMTIN [Suspect]
     Indication: OVARIAN CANCER RECURRENT
     Dosage: 1.5MGM2 PER DAY
     Route: 042
     Dates: start: 20130107, end: 20130109
  2. HYCAMTIN [Suspect]
     Indication: OVARIAN CANCER RECURRENT
     Dosage: 1.25MGM2 PER DAY
     Route: 042
     Dates: start: 20130128, end: 20130201
  3. HYCAMTIN [Suspect]
     Indication: BREAST CANCER RECURRENT
     Dosage: 1MGM2 PER DAY
     Route: 042
     Dates: start: 20130304, end: 20130308
  4. DEXART [Concomitant]
     Route: 042
  5. WYPAX [Concomitant]
     Route: 048
  6. CIPROXAN [Concomitant]
     Dosage: 1200MG PER DAY
     Route: 048
  7. MAXIPIME [Concomitant]
     Dosage: 4G PER DAY
     Route: 042

REACTIONS (11)
  - Nausea [Recovered/Resolved]
  - Decreased appetite [Recovered/Resolved]
  - White blood cell count decreased [Recovered/Resolved]
  - Red blood cell count decreased [Not Recovered/Not Resolved]
  - Anaemia [Recovering/Resolving]
  - Dizziness [Recovered/Resolved]
  - Abdominal distension [Recovered/Resolved]
  - Abdominal pain [Recovered/Resolved]
  - Fatigue [Recovered/Resolved]
  - Diarrhoea [Recovered/Resolved]
  - Febrile neutropenia [Recovered/Resolved]
